FAERS Safety Report 10498659 (Version 1)
Quarter: 2014Q4

REPORT INFORMATION
  Report Type: Spontaneous
  Country: US (occurrence: US)
  Receive Date: 20141006
  Receipt Date: 20141006
  Transmission Date: 20150528
  Serious: Yes (Hospitalization)
  Sender: FDA-Public Use
  Company Number: US-BIOMARINAP-US-2014-104261

PATIENT
  Sex: Female

DRUGS (2)
  1. BENADRYL [Concomitant]
     Active Substance: DIPHENHYDRAMINE HYDROCHLORIDE
     Indication: PREMEDICATION
  2. ALDURAZYME [Suspect]
     Active Substance: LARONIDASE
     Indication: MUCOPOLYSACCHARIDOSIS I
     Dosage: 5.8 MG, QW
     Route: 042
     Dates: start: 20140403

REACTIONS (6)
  - Tachypnoea [Recovering/Resolving]
  - Umbilical hernia [Unknown]
  - Lip swelling [Unknown]
  - Urticaria [Unknown]
  - Eye swelling [Unknown]
  - Adenovirus infection [Recovering/Resolving]
